FAERS Safety Report 10798825 (Version 1)
Quarter: 2015Q1

REPORT INFORMATION
  Report Type: Report from Study
  Country: US (occurrence: US)
  Receive Date: 20150216
  Receipt Date: 20150216
  Transmission Date: 20150721
  Serious: No
  Sender: FDA-Public Use
  Company Number: US-ABBVIE-14K-163-1235260-00

PATIENT
  Age: 39 Year
  Sex: Female

DRUGS (7)
  1. A AND D NOS [Suspect]
     Active Substance: DIMETHICONE\ZINC OXIDE OR PETROLATUM
     Indication: PRODUCT USED FOR UNKNOWN INDICATION
  2. HUMIRA [Suspect]
     Active Substance: ADALIMUMAB
     Dates: start: 20140421
  3. UNKNOWN FACE AND BODY CREAMS [Concomitant]
     Indication: PSORIASIS
  4. HUMIRA [Suspect]
     Active Substance: ADALIMUMAB
     Indication: PSORIASIS
     Dates: start: 20140331, end: 20140331
  5. HUMIRA [Suspect]
     Active Substance: ADALIMUMAB
     Dates: start: 20140407, end: 20140407
  6. DERMA SMOOTHE [Concomitant]
     Indication: PSORIASIS
  7. UNKNOWN OVER THE COUNTER ALLERGY PILL [Concomitant]
     Indication: PRODUCT USED FOR UNKNOWN INDICATION
     Dosage: PILL

REACTIONS (6)
  - Vaginal laceration [Not Recovered/Not Resolved]
  - Diarrhoea [Recovered/Resolved]
  - Drug effect incomplete [Unknown]
  - Vulvovaginal burning sensation [Not Recovered/Not Resolved]
  - Vomiting [Recovered/Resolved]
  - Vulvovaginal pruritus [Not Recovered/Not Resolved]

NARRATIVE: CASE EVENT DATE: 2014
